FAERS Safety Report 9869901 (Version 1)
Quarter: 2014Q1

REPORT INFORMATION
  Report Type: Spontaneous
  Country: US (occurrence: None)
  Receive Date: 20140203
  Receipt Date: 20140203
  Transmission Date: 20141002
  Serious: Yes (Hospitalization)
  Sender: FDA-Public Use
  Company Number: None

PATIENT
  Sex: 0

DRUGS (1)
  1. IPILIMUMAB [Suspect]
     Indication: MALIGNANT MELANOMA
     Dosage: 999MG EVERY 21 DAYS X 4 DOES 21 DAYS IV
     Route: 042
     Dates: start: 20131120, end: 20140124

REACTIONS (1)
  - Chronic obstructive pulmonary disease [None]
